FAERS Safety Report 8180191-X (Version None)
Quarter: 2012Q1

REPORT INFORMATION
  Report Type: 
  Country: None (occurrence: None)
  Receive Date: 20120302
  Receipt Date: 20120228
  Transmission Date: 20120608
  Serious: Yes (Other)
  Sender: FDA-Public Use
  Company Number: US-BAYER-2010-003339

PATIENT
  Age: 17 Year
  Sex: Female
  Weight: 62 kg

DRUGS (11)
  1. TRAMADOL HCL [Concomitant]
     Dosage: UNK
     Dates: start: 20091123
  2. MOBIC [Concomitant]
  3. SPRINTEC [Concomitant]
     Dosage: UNK
  4. LACTULOSE [Concomitant]
  5. ZEGERID [Concomitant]
  6. ALBUTEROL [Concomitant]
     Dosage: UNK
     Dates: start: 20090918
  7. YAZ [Suspect]
     Indication: CONTRACEPTION
     Dosage: UNK
     Route: 048
     Dates: start: 20080201, end: 20091101
  8. YAZ [Suspect]
     Indication: MENORRHAGIA
  9. PROMETHAZINE [Concomitant]
  10. ACIPHEX [Concomitant]
  11. VALTREX [Concomitant]
     Dosage: UNK
     Dates: start: 20090918, end: 20091123

REACTIONS (3)
  - INJURY [None]
  - BILIARY DYSKINESIA [None]
  - PAIN [None]
